FAERS Safety Report 11297928 (Version 1)
Quarter: 2015Q3

REPORT INFORMATION
  Report Type: Spontaneous
  Country: US (occurrence: US)
  Receive Date: 20150722
  Receipt Date: 20150722
  Transmission Date: 20151125
  Serious: No
  Sender: FDA-Public Use
  Company Number: US-ELI_LILLY_AND_COMPANY-US201009006193

PATIENT
  Sex: Female
  Weight: 58.5 kg

DRUGS (3)
  1. HUMATROPE [Suspect]
     Active Substance: SOMATROPIN
     Dosage: UNK, UNKNOWN
     Route: 065
  2. HUMATROPE [Suspect]
     Active Substance: SOMATROPIN
     Dosage: 4 CLICKS, UNKNOWN
     Route: 065
  3. L-THYROXINE [Concomitant]
     Active Substance: LEVOTHYROXINE
     Dosage: 88 UG, UNKNOWN
     Route: 065

REACTIONS (4)
  - Drug dose omission [Unknown]
  - Weight decreased [Unknown]
  - Nervousness [Unknown]
  - Mental impairment [Unknown]
